FAERS Safety Report 7749370-7 (Version None)
Quarter: 2011Q3

REPORT INFORMATION
  Report Type: 
  Country: None (occurrence: None)
  Receive Date: 20110825
  Receipt Date: 20110627
  Transmission Date: 20111222
  Serious: No
  Sender: FDA-Public Use
  Company Number: 330759

PATIENT
  Age: 58 Year
  Sex: Male

DRUGS (3)
  1. VICTOZA [Suspect]
  2. VICTOZA [Suspect]
  3. VICTOZA [Suspect]
     Indication: TYPE 2 DIABETES MELLITUS
     Dosage: SEE IMAGE

REACTIONS (1)
  - NAUSEA [None]
